FAERS Safety Report 8050330 (Version 9)
Quarter: 2013Q3

REPORT INFORMATION
  Report Type: Report from Study
  Country: JP (occurrence: JP)
  Receive Date: 20110722
  Receipt Date: 20130918
  Transmission Date: 20140515
  Serious: No
  Sender: FDA-Public Use
  Company Number: JP-AMGEN-JPNSP2011036743

PATIENT
  Age: 70 Year
  Sex: Female
  Weight: 45 kg

DRUGS (13)
  1. ROMIPLOSTIM - KHK [Suspect]
     Indication: IMMUNE THROMBOCYTOPENIC PURPURA
     Dosage: 1 MUG/KG, QWK
     Route: 058
     Dates: start: 20110421, end: 20110506
  2. ROMIPLOSTIM - KHK [Suspect]
     Dosage: 2 MUG/KG, QWK
     Route: 058
     Dates: start: 20110512, end: 20110519
  3. ROMIPLOSTIM - KHK [Suspect]
     Dosage: 3 MUG/KG, QWK
     Route: 058
     Dates: start: 20110526, end: 20110609
  4. ROMIPLOSTIM - KHK [Suspect]
     Dosage: 4 MUG/KG, QWK
     Route: 058
     Dates: start: 20110616, end: 20110714
  5. ROMIPLOSTIM - KHK [Suspect]
     Dosage: 1 MUG/KG, QWK
     Route: 058
     Dates: start: 20110811, end: 20110818
  6. ROMIPLOSTIM - KHK [Suspect]
     Dosage: 2 MUG/KG, QWK
     Route: 058
     Dates: start: 20110825, end: 20110908
  7. ROMIPLOSTIM - KHK [Suspect]
     Dosage: 3 MUG/KG, QWK
     Route: 058
     Dates: start: 20110915, end: 20111020
  8. PREDONINE [Concomitant]
     Dosage: 5 MG, UNK
     Route: 048
     Dates: start: 201009, end: 20110428
  9. MYSLEE [Concomitant]
     Indication: PROPHYLAXIS
     Dosage: UNK
     Route: 048
  10. DEPAS [Concomitant]
     Indication: PROPHYLAXIS
     Dosage: UNK
     Route: 048
  11. ROZEREM [Concomitant]
     Indication: PROPHYLAXIS
     Dosage: UNK
     Route: 048
  12. CALBLOCK [Concomitant]
     Indication: PROPHYLAXIS
     Dosage: UNK
     Route: 048
  13. LOXONIN [Concomitant]
     Indication: PROPHYLAXIS
     Dosage: UNK
     Route: 065

REACTIONS (4)
  - Platelet count abnormal [Recovered/Resolved]
  - Petechiae [Recovered/Resolved]
  - Purpura [Recovered/Resolved]
  - Antibody test [Unknown]
